FAERS Safety Report 7161299-4 (Version None)
Quarter: 2010Q4

REPORT INFORMATION
  Report Type: 
  Country: None (occurrence: None)
  Receive Date: 20101210
  Receipt Date: 20101210
  Transmission Date: 20110411
  Serious: Yes (Life-Threatening, Hospitalization)
  Sender: FDA-Public Use
  Company Number: None

PATIENT
  Age: 48 Year
  Sex: Male
  Weight: 113.6 kg

DRUGS (1)
  1. METHYLPHENIDATE [Suspect]
     Indication: ATRIAL FIBRILLATION
     Dosage: 20 MG BID PO
     Route: 048
     Dates: start: 20091123, end: 20101206

REACTIONS (2)
  - ATRIAL FIBRILLATION [None]
  - TACHYCARDIA [None]
